FAERS Safety Report 15602505 (Version 1)
Quarter: 2018Q4

REPORT INFORMATION
  Report Type: Spontaneous
  Country: MX (occurrence: MX)
  Receive Date: 20181109
  Receipt Date: 20181109
  Transmission Date: 20190205
  Serious: Yes (Other)
  Sender: FDA-Public Use
  Company Number: MX-ALEXION-A201814644

PATIENT
  Age: 5 Year
  Sex: Male

DRUGS (2)
  1. SOLIRIS [Suspect]
     Active Substance: ECULIZUMAB
     Indication: ATYPICAL HAEMOLYTIC URAEMIC SYNDROME
     Dosage: 300 MG
     Route: 042
     Dates: start: 20130920, end: 20130927
  2. SOLIRIS [Suspect]
     Active Substance: ECULIZUMAB
     Dosage: 300 MG
     Route: 042
     Dates: start: 20131018

REACTIONS (5)
  - Haemoglobin decreased [Unknown]
  - Blood creatinine increased [Unknown]
  - Seizure [Unknown]
  - Haematocrit decreased [Unknown]
  - Reticulocyte percentage increased [Unknown]

NARRATIVE: CASE EVENT DATE: 20181106
